FAERS Safety Report 9518062 (Version 4)
Quarter: 2013Q4

REPORT INFORMATION
  Report Type: Spontaneous
  Country: US (occurrence: US)
  Receive Date: 20130912
  Receipt Date: 20131107
  Transmission Date: 20140711
  Serious: No
  Sender: FDA-Public Use
  Company Number: US-PFIZER INC-2013257214

PATIENT
  Age: 10 Year
  Sex: Female

DRUGS (2)
  1. ZITHROMAX [Suspect]
     Dosage: BOTTLE ONE: 12ML ON FIRST DAY FOLLOWED BY 6ML FOR NEXT FOUR DAYS, 1X/DAY
     Route: 048
     Dates: start: 20130831, end: 2013
  2. ZITHROMAX [Suspect]
     Dosage: BOTTLE TWO: 12ML ON FIRST DAY FOLLOWED BY 6ML FOR NEXT FOUR DAYS, 1X/DAY
     Route: 048
     Dates: start: 2013

REACTIONS (2)
  - Circumstance or information capable of leading to medication error [Unknown]
  - Product packaging quantity issue [Unknown]
